FAERS Safety Report 4957461-9 (Version None)
Quarter: 2006Q1

REPORT INFORMATION
  Report Type: 
  Country: None (occurrence: None)
  Receive Date: 20060328
  Receipt Date: 20060328
  Transmission Date: 20060701
  Serious: No
  Sender: FDA-Public Use
  Company Number: None

PATIENT
  Age: 18 Year
  Sex: Male

DRUGS (1)
  1. SUCCINYLCHOLINE CHLORIDE [Suspect]
     Dosage: 100 MG ONCE IV PUSH
     Route: 042
     Dates: start: 20051122, end: 20051122

REACTIONS (2)
  - PARALYSIS [None]
  - PROCEDURAL COMPLICATION [None]
